FAERS Safety Report 11768645 (Version 2)
Quarter: 2015Q4

REPORT INFORMATION
  Report Type: Spontaneous
  Country: JP (occurrence: JP)
  Receive Date: 20151123
  Receipt Date: 20151204
  Transmission Date: 20160304
  Serious: Yes (Other)
  Sender: FDA-Public Use
  Company Number: JP-PFIZER INC-2015400468

PATIENT
  Age: 82 Year
  Sex: Male

DRUGS (7)
  1. PREDNISOLONE. [Concomitant]
     Active Substance: PREDNISOLONE
     Indication: NEPHROTIC SYNDROME
     Dosage: 40 MG, 1X/DAY
     Route: 048
  2. ROSUVASTATIN [Concomitant]
     Active Substance: ROSUVASTATIN
     Dosage: UNK
     Route: 048
  3. CICLOSPORIN [Interacting]
     Active Substance: CYCLOSPORINE
     Dosage: 50 MG, 1X/DAY
     Route: 048
  4. ATORVASTATIN CALCIUM. [Suspect]
     Active Substance: ATORVASTATIN CALCIUM
     Indication: NEPHROTIC SYNDROME
     Dosage: 20 MG, 1X/DAY
     Route: 065
  5. CICLOSPORIN [Interacting]
     Active Substance: CYCLOSPORINE
     Dosage: 85 MG, 1X/DAY
     Route: 048
  6. CICLOSPORIN [Interacting]
     Active Substance: CYCLOSPORINE
     Indication: NEPHROTIC SYNDROME
     Dosage: 100 MG, 1X/DAY
     Route: 048
  7. PREDNISOLONE. [Concomitant]
     Active Substance: PREDNISOLONE
     Dosage: 15 MG, 1X/DAY
     Route: 048

REACTIONS (5)
  - Drug interaction [Unknown]
  - Renal disorder [Unknown]
  - Hepatic enzyme increased [Unknown]
  - Blood creatine phosphokinase increased [Unknown]
  - Drug eruption [Recovering/Resolving]
